FAERS Safety Report 9969648 (Version 2)
Quarter: 2014Q2

REPORT INFORMATION
  Report Type: Report from Study
  Country: TR (occurrence: TR)
  Receive Date: 20140306
  Receipt Date: 20140405
  Transmission Date: 20141212
  Serious: Yes (Other)
  Sender: FDA-Public Use
  Company Number: TR-ROCHE-1359414

PATIENT
  Age: 72 Year
  Sex: Female

DRUGS (1)
  1. ALTEPLASE [Suspect]
     Indication: PULMONARY EMBOLISM
     Dosage: 50 MG,1 IN 1 ONCE
     Route: 042

REACTIONS (1)
  - Dyspnoea [Recovering/Resolving]
